FAERS Safety Report 5931576-0 (Version None)
Quarter: 2008Q4

REPORT INFORMATION
  Report Type: 
  Country: None (occurrence: None)
  Receive Date: 20081027
  Receipt Date: 20081015
  Transmission Date: 20090506
  Serious: Yes (Hospitalization)
  Sender: FDA-Public Use
  Company Number: US-SANOFI-SYNTHELABO-A03200800673

PATIENT
  Sex: Male
  Weight: 89.8 kg

DRUGS (4)
  1. UROXATRAL [Suspect]
     Indication: BLADDER DISORDER
     Route: 048
     Dates: start: 20071110, end: 20080801
  2. UROXATRAL [Suspect]
     Indication: BENIGN PROSTATIC HYPERPLASIA
     Route: 048
     Dates: start: 20071110, end: 20080801
  3. PREVACID [Concomitant]
     Indication: GASTRIC ULCER
     Route: 048
     Dates: start: 20071001
  4. LIPITOR [Concomitant]
     Indication: HYPERLIPIDAEMIA
     Route: 048
     Dates: start: 20050101

REACTIONS (2)
  - ATRIAL FIBRILLATION [None]
  - ATRIAL FLUTTER [None]
